FAERS Safety Report 20521361 (Version 2)
Quarter: 2022Q1

REPORT INFORMATION
  Report Type: Report from Study
  Country: CO (occurrence: CO)
  Receive Date: 20220226
  Receipt Date: 20220313
  Transmission Date: 20220423
  Serious: Yes (Other)
  Sender: FDA-Public Use
  Company Number: CO-BRISTOL-MYERS SQUIBB COMPANY-BMS-2022-027899

PATIENT
  Sex: Male

DRUGS (1)
  1. APIXABAN [Suspect]
     Active Substance: APIXABAN
     Indication: Product used for unknown indication
     Route: 048

REACTIONS (1)
  - Cardiac disorder [Unknown]
